FAERS Safety Report 9998879 (Version 5)
Quarter: 2014Q2

REPORT INFORMATION
  Report Type: Spontaneous
  Country: GB (occurrence: GB)
  Receive Date: 20140312
  Receipt Date: 20140515
  Transmission Date: 20141212
  Serious: Yes (Life-Threatening, Hospitalization)
  Sender: FDA-Public Use
  Company Number: GB-BEH-2014040988

PATIENT
  Age: 70 Year
  Sex: Male
  Weight: 74 kg

DRUGS (8)
  1. BERIPLEX [Suspect]
     Indication: EMERGENCY CARE
     Dosage: 1000 IU X 2
     Route: 042
     Dates: start: 20140228, end: 20140228
  2. WARFARIN [Concomitant]
     Indication: ATRIAL FIBRILLATION
  3. BISOPROLOL [Concomitant]
     Route: 048
  4. DIGOXIN [Concomitant]
     Route: 048
  5. DIPROBASE [Concomitant]
     Route: 061
  6. CHLORHEXIDINE [Concomitant]
     Route: 061
  7. ADCAL D3 [Concomitant]
     Route: 048
  8. VANCOMYCIN [Concomitant]
     Indication: ANTIBIOTIC PROPHYLAXIS
     Route: 042
     Dates: start: 20140228, end: 20140228

REACTIONS (8)
  - Respiratory distress [Recovered/Resolved]
  - Erythema [Recovered/Resolved]
  - Urticaria [Recovered/Resolved]
  - Adverse reaction [Recovered/Resolved]
  - Blood pressure increased [Not Recovered/Not Resolved]
  - Pruritus [Not Recovered/Not Resolved]
  - Dyspnoea [Not Recovered/Not Resolved]
  - Urticaria [Recovered/Resolved]
